FAERS Safety Report 14253501 (Version 9)
Quarter: 2019Q1

REPORT INFORMATION
  Report Type: Spontaneous
  Country: NO (occurrence: NO)
  Receive Date: 20171206
  Receipt Date: 20190305
  Transmission Date: 20190417
  Serious: Yes (Other)
  Sender: FDA-Public Use
  Company Number: NO-ACCORD-061592

PATIENT
  Sex: Female

DRUGS (34)
  1. METOCLOPRAMIDE. [Suspect]
     Active Substance: METOCLOPRAMIDE
     Route: 065
  2. TRAMADOL. [Suspect]
     Active Substance: TRAMADOL
     Route: 065
  3. SOMAC [Suspect]
     Active Substance: PANTOPRAZOLE SODIUM
  4. ONDANSETRON [Suspect]
     Active Substance: ONDANSETRON
  5. NEURONTIN [Suspect]
     Active Substance: GABAPENTIN
     Route: 065
  6. TARGINIQ ER [Suspect]
     Active Substance: NALOXONE HYDROCHLORIDE\OXYCODONE HYDROCHLORIDE
  7. ZOPICLONE [Suspect]
     Active Substance: ZOPICLONE
     Route: 065
  8. KETORAX [Suspect]
     Active Substance: KETOBEMIDONE HYDROCHLORIDE
  9. PANTOPRAZOLE [Suspect]
     Active Substance: PANTOPRAZOLE
  10. NALOXONE [Suspect]
     Active Substance: NALOXONE
  11. DIAZEPAM. [Suspect]
     Active Substance: DIAZEPAM
  12. OXYNORM [Suspect]
     Active Substance: OXYCODONE HYDROCHLORIDE
  13. NOZINAN [Suspect]
     Active Substance: LEVOMEPROMAZINE
     Route: 065
  14. BUSCOPAN [Suspect]
     Active Substance: BUTYLSCOPOLAMINE BROMIDE
  15. DULCOLAX NOS [Suspect]
     Active Substance: BISACODYL OR DOCUSATE SODIUM
     Route: 048
  16. OXYCODONE/NALOXONE [Concomitant]
  17. GABAPENTIN. [Suspect]
     Active Substance: GABAPENTIN
  18. ZOLPIDEM [Suspect]
     Active Substance: ZOLPIDEM\ZOLPIDEM TARTRATE
     Route: 048
  19. MORPHINE [Suspect]
     Active Substance: MORPHINE
     Route: 065
  20. VALIUM [Suspect]
     Active Substance: DIAZEPAM
     Route: 065
  21. PINEX FORTE [Suspect]
     Active Substance: ACETAMINOPHEN\CODEINE PHOSPHATE
  22. FLUCONAZOL [Suspect]
     Active Substance: FLUCONAZOLE
     Route: 065
  23. SETOFILM [Suspect]
     Active Substance: ONDANSETRON
     Dosage: FORMULATION: ORODISPERSIBLE FILM
     Route: 065
  24. PREDNISOLONE. [Suspect]
     Active Substance: PREDNISOLONE
  25. FURIX [Suspect]
     Active Substance: FUROSEMIDE
     Route: 065
  26. MIDAZOLAM [Suspect]
     Active Substance: MIDAZOLAM HYDROCHLORIDE
     Route: 065
  27. SOBRIL [Suspect]
     Active Substance: OXAZEPAM
     Route: 065
  28. ZOFRAN [Suspect]
     Active Substance: ONDANSETRON HYDROCHLORIDE
     Route: 065
  29. QUETIAPINE/QUETIAPINE FUMARATE [Concomitant]
  30. AFIPRAM [Suspect]
     Active Substance: METOCLOPRAMIDE HYDROCHLORIDE
  31. STESOLID [Suspect]
     Active Substance: DIAZEPAM
  32. ORAMORPH [Suspect]
     Active Substance: MORPHINE SULFATE
  33. BACLOFEN. [Suspect]
     Active Substance: BACLOFEN
     Route: 065
  34. OXYCODONE [Suspect]
     Active Substance: OXYCODONE

REACTIONS (5)
  - Pain [None]
  - Drug dependence [Unknown]
  - Drug abuse [Unknown]
  - Drug diversion [Unknown]
  - Abdominal pain upper [None]
